FAERS Safety Report 6599414-3 (Version None)
Quarter: 2010Q1

REPORT INFORMATION
  Report Type: 
  Country: None (occurrence: None)
  Receive Date: 20100224
  Receipt Date: 20100203
  Transmission Date: 20100710
  Serious: No
  Sender: FDA-Public Use
  Company Number: US-BAYER-201011295BCC

PATIENT
  Age: 81 Year
  Sex: Male
  Weight: 86 kg

DRUGS (10)
  1. ALEVE [Suspect]
     Indication: BACK PAIN
     Dosage: TOTAL DAILY DOSE: 220 MG  UNIT DOSE: 220 MG
     Route: 048
     Dates: start: 20100201, end: 20100201
  2. ALEVE [Suspect]
     Dosage: TOTAL DAILY DOSE: 220 MG  UNIT DOSE: 220 MG
     Route: 048
     Dates: start: 20100202
  3. METFORMIN HCL [Concomitant]
     Route: 065
  4. ZOCOR [Concomitant]
     Route: 065
  5. NORVASC [Concomitant]
     Route: 065
  6. VASOTEC [Concomitant]
     Route: 065
  7. LUMIGAN [Concomitant]
     Route: 065
  8. ASPIRIN [Concomitant]
     Route: 048
  9. CENTRUM ONE A DAY VITAMIN [Concomitant]
     Route: 065
  10. VITAMIN B COMPLEX CAP [Concomitant]
     Route: 065

REACTIONS (1)
  - EPISTAXIS [None]
